FAERS Safety Report 24217810 (Version 1)
Quarter: 2024Q3

REPORT INFORMATION
  Report Type: Spontaneous
  Country: GB (occurrence: None)
  Receive Date: 20240816
  Receipt Date: 20240816
  Transmission Date: 20241017
  Serious: Yes (Other)
  Sender: ASTRAZENECA
  Company Number: 2024A181491

PATIENT
  Age: 68 Year

DRUGS (6)
  1. TICAGRELOR [Suspect]
     Active Substance: TICAGRELOR
     Dosage: 90 MG TABLETS, TWICE A DAY
     Route: 048
     Dates: start: 20240611, end: 20240616
  2. ISOSORBIDE MONONITRATE [Suspect]
     Active Substance: ISOSORBIDE MONONITRATE
     Dosage: 30 MG ONCE DAILY
     Route: 048
     Dates: start: 20240611
  3. ASPIRIN [Suspect]
     Active Substance: ASPIRIN
     Dosage: 75 MG ONCE DAILY
     Route: 048
     Dates: start: 20240611
  4. CLOPIDOGREL [Suspect]
     Active Substance: CLOPIDOGREL BISULFATE
     Dosage: 75 MG ONCE DAILY
     Route: 048
     Dates: start: 20240617
  5. RAMIPRIL [Suspect]
     Active Substance: RAMIPRIL
     Dosage: 1.25 MG ONCE DAILY
     Dates: start: 20240611
  6. BISOPROLOL [Suspect]
     Active Substance: BISOPROLOL\BISOPROLOL FUMARATE
     Dosage: 2.5 MG ONCE DAILY
     Route: 048
     Dates: start: 20240611

REACTIONS (5)
  - Rash [Unknown]
  - Drug hypersensitivity [Unknown]
  - Urticaria [Not Recovered/Not Resolved]
  - Lymphorrhoea [Unknown]
  - Skin weeping [Unknown]

NARRATIVE: CASE EVENT DATE: 20240710
